FAERS Safety Report 6638635-8 (Version None)
Quarter: 2010Q1

REPORT INFORMATION
  Report Type: 
  Country: None (occurrence: None)
  Receive Date: 20100317
  Receipt Date: 20100309
  Transmission Date: 20100710
  Serious: Yes (Other)
  Sender: FDA-Public Use
  Company Number: US-SANOFI-AVENTIS-2010SA014167

PATIENT
  Age: 73 Year
  Sex: Male

DRUGS (1)
  1. LANTUS [Suspect]
     Dosage: DOSE:64 UNIT(S)
     Route: 058
     Dates: start: 20020101

REACTIONS (3)
  - AORTIC VALVE REPLACEMENT [None]
  - CHOLECYSTECTOMY [None]
  - VASCULAR GRAFT [None]
